FAERS Safety Report 16917273 (Version 1)
Quarter: 2019Q4

REPORT INFORMATION
  Report Type: Other
  Country: TR (occurrence: TR)
  Receive Date: 20191015
  Receipt Date: 20191015
  Transmission Date: 20200122
  Serious: Yes (Other)
  Sender: FDA-Public Use
  Company Number: TR-DEXPHARM-20190860

PATIENT
  Age: 27 Year
  Sex: Female

DRUGS (2)
  1. DICLOFENAC [Suspect]
     Active Substance: DICLOFENAC
  2. MIXOVUL [Suspect]
     Active Substance: LIDOCAINE\METRONIDAZOLE\MICONAZOLE NITRATE
     Indication: VAGINAL INFECTION

REACTIONS (1)
  - Fixed eruption [Unknown]
